FAERS Safety Report 9533241 (Version 1)
Quarter: 2013Q3

REPORT INFORMATION
  Report Type: Spontaneous
  Country: US (occurrence: None)
  Receive Date: 20130916
  Receipt Date: 20130916
  Transmission Date: 20140515
  Serious: Yes (Other)
  Sender: FDA-Public Use
  Company Number: 2013P1019155

PATIENT
  Age: 18 Year
  Sex: Female
  Weight: 63.05 kg

DRUGS (1)
  1. MYORISAN [Suspect]
     Indication: ACNE CYSTIC
     Route: 048
     Dates: start: 20130816, end: 20130824

REACTIONS (2)
  - Crying [None]
  - Hypersensitivity [None]
